FAERS Safety Report 9639382 (Version 3)
Quarter: 2013Q4

REPORT INFORMATION
  Report Type: Not Available
  Country: FR (occurrence: FR)
  Receive Date: 20131022
  Receipt Date: 20131212
  Transmission Date: 20140711
  Serious: Yes (Hospitalization)
  Sender: FDA-Public Use
  Company Number: FR-RB-059639-13

PATIENT
  Age: 35 Year
  Sex: Male

DRUGS (1)
  1. SUBUTEX [Suspect]
     Indication: DRUG DEPENDENCE
     Route: 042

REACTIONS (5)
  - Subcutaneous abscess [Unknown]
  - Bacteraemia [Unknown]
  - Intervertebral discitis [Unknown]
  - Extradural abscess [Recovering/Resolving]
  - Intentional drug misuse [Unknown]
